FAERS Safety Report 14103297 (Version 1)
Quarter: 2017Q4

REPORT INFORMATION
  Report Type: Spontaneous
  Country: US (occurrence: US)
  Receive Date: 20171018
  Receipt Date: 20171018
  Transmission Date: 20180321
  Serious: Yes (Other)
  Sender: FDA-Public Use
  Company Number: US-PFIZER INC-2017446518

PATIENT
  Age: 78 Year
  Sex: Female
  Weight: 68.4 kg

DRUGS (1)
  1. METHOTREXATE SODIUM. [Suspect]
     Active Substance: METHOTREXATE SODIUM
     Dosage: UNK
     Dates: start: 1997

REACTIONS (3)
  - Oropharyngeal blistering [Unknown]
  - Dyspnoea [Unknown]
  - Oral mucosal blistering [Unknown]
